FAERS Safety Report 25982763 (Version 2)
Quarter: 2025Q4

REPORT INFORMATION
  Report Type: Other
  Country: EU (occurrence: EU)
  Receive Date: 20251031
  Receipt Date: 20251208
  Transmission Date: 20260117
  Serious: Yes (Hospitalization)
  Sender: Steriscience PTE
  Company Number: EU-QIL-007397

PATIENT
  Sex: Female
  Weight: 2.22 kg

DRUGS (7)
  1. MEROPENEM [Suspect]
     Active Substance: MEROPENEM
     Indication: Septic shock
     Dosage: 1 GRAM, Q8H
     Route: 065
     Dates: start: 20200126
  2. MEROPENEM [Suspect]
     Active Substance: MEROPENEM
     Indication: Disseminated intravascular coagulation
     Dosage: 2 GRAM, Q8H
     Route: 065
     Dates: start: 20200126, end: 20200127
  3. AMPICILLIN [Suspect]
     Active Substance: AMPICILLIN
     Indication: Listeriosis
     Dosage: UNK
     Route: 042
     Dates: start: 20200126
  4. AMPICILLIN [Suspect]
     Active Substance: AMPICILLIN
     Dosage: UNK
     Route: 042
     Dates: start: 202001
  5. GENTAMICIN [Suspect]
     Active Substance: GENTAMICIN
     Indication: Listeriosis
     Dosage: UNK
     Route: 042
     Dates: start: 202001
  6. AMOXICILLIN [Suspect]
     Active Substance: AMOXICILLIN
     Indication: Listeriosis
     Dosage: UNK
     Route: 065
  7. METRONIDAZOLE [Concomitant]
     Active Substance: METRONIDAZOLE
     Indication: Product used for unknown indication
     Dosage: UNK
     Route: 065

REACTIONS (2)
  - Premature baby [None]
  - Foetal exposure during pregnancy [Unknown]
